FAERS Safety Report 14718297 (Version 7)
Quarter: 2018Q4

REPORT INFORMATION
  Report Type: Report from Study
  Country: US (occurrence: US)
  Receive Date: 20180404
  Receipt Date: 20181108
  Transmission Date: 20190204
  Serious: No
  Sender: FDA-Public Use
  Company Number: US-SA-2018SA083918

PATIENT
  Age: 62 Year
  Sex: Female
  Weight: 72.12 kg

DRUGS (8)
  1. DUPILUMAB [Suspect]
     Active Substance: DUPILUMAB
     Indication: ECZEMA
     Dosage: 300 MG, QOW
     Route: 058
  2. FISH OIL [Concomitant]
     Active Substance: FISH OIL
     Dosage: 1000 MG,BID
     Route: 065
  3. EUCRISA [Concomitant]
     Active Substance: CRISABOROLE
     Dosage: UNK UNK,UNK
     Route: 065
  4. LOVASTATIN. [Concomitant]
     Active Substance: LOVASTATIN
     Indication: BLOOD CHOLESTEROL
     Dosage: 20 MG,QD
     Route: 065
  5. HYDROCHLOROTHIAZIDE. [Concomitant]
     Active Substance: HYDROCHLOROTHIAZIDE
     Indication: BLOOD PRESSURE MEASUREMENT
     Dosage: 12 MG,QD
     Route: 065
  6. DUPILUMAB [Suspect]
     Active Substance: DUPILUMAB
     Indication: DERMATITIS ATOPIC
     Dosage: 600 MG, 1X
     Route: 058
     Dates: start: 20180317, end: 201803
  7. DILTIAZEM. [Concomitant]
     Active Substance: DILTIAZEM
     Indication: BLOOD PRESSURE MEASUREMENT
     Dosage: 40 MG,BID
     Route: 065
  8. RANITIDINE. [Concomitant]
     Active Substance: RANITIDINE
     Dosage: 150 MG,QD
     Route: 065
     Dates: start: 2015

REACTIONS (17)
  - Lacrimation increased [Not Recovered/Not Resolved]
  - Nasal congestion [Not Recovered/Not Resolved]
  - Tremor [Unknown]
  - Drug ineffective [Unknown]
  - Ocular hyperaemia [Not Recovered/Not Resolved]
  - Vulvovaginal pruritus [Unknown]
  - Asthenia [Not Recovered/Not Resolved]
  - Oral herpes [Not Recovered/Not Resolved]
  - Nervousness [Not Recovered/Not Resolved]
  - Somnolence [Not Recovered/Not Resolved]
  - Oropharyngeal pain [Not Recovered/Not Resolved]
  - Dry eye [Not Recovered/Not Resolved]
  - Dizziness [Not Recovered/Not Resolved]
  - Abdominal discomfort [Unknown]
  - Blood glucose increased [Unknown]
  - Eye swelling [Not Recovered/Not Resolved]
  - Vulvovaginal pain [Unknown]

NARRATIVE: CASE EVENT DATE: 20180318
